FAERS Safety Report 5074415-5 (Version None)
Quarter: 2006Q3

REPORT INFORMATION
  Report Type: 
  Country: None (occurrence: None)
  Receive Date: 20060803
  Receipt Date: 20060719
  Transmission Date: 20061208
  Serious: Yes (Other)
  Sender: FDA-Public Use
  Company Number: DE200607003425

PATIENT
  Age: 51 Year
  Sex: Female
  Weight: 75 kg

DRUGS (2)
  1. YENTREVE) (DULOXETINE HYDROCHLORIDE) TABLET [Suspect]
     Indication: STRESS URINARY INCONTINENCE
     Dosage: 40 MG, DAILY (1/D), ORAL
     Route: 048
     Dates: start: 20050913, end: 20060301
  2. ORGAMETRIL (LYNESTRENOL) [Concomitant]

REACTIONS (1)
  - HYPERTENSION [None]
